FAERS Safety Report 13055416 (Version 1)
Quarter: 2016Q4

REPORT INFORMATION
  Report Type: Spontaneous
  Country: JP (occurrence: JP)
  Receive Date: 20161222
  Receipt Date: 20161222
  Transmission Date: 20170207
  Serious: Yes (Other)
  Sender: FDA-Public Use
  Company Number: JP-ABBVIE-16P-087-1808776-00

PATIENT
  Age: 38 Year
  Sex: Male

DRUGS (4)
  1. CLOZAPINE. [Interacting]
     Active Substance: CLOZAPINE
     Indication: SCHIZOPHRENIA
     Route: 048
  2. LITHIUM CARBONATE. [Concomitant]
     Active Substance: LITHIUM CARBONATE
     Indication: PRODUCT USED FOR UNKNOWN INDICATION
  3. FLUVOXAMINE MALEATE. [Interacting]
     Active Substance: FLUVOXAMINE MALEATE
     Indication: IMPULSIVE BEHAVIOUR
     Route: 065
  4. FLUVOXAMINE MALEATE. [Suspect]
     Active Substance: FLUVOXAMINE MALEATE
     Indication: OBSESSIVE-COMPULSIVE SYMPTOM
     Route: 065

REACTIONS (4)
  - Drug interaction [Unknown]
  - Somnolence [Unknown]
  - Malaise [Unknown]
  - Generalised tonic-clonic seizure [Unknown]
